FAERS Safety Report 10592413 (Version 1)
Quarter: 2014Q4

REPORT INFORMATION
  Report Type: Spontaneous
  Country: US (occurrence: None)
  Receive Date: 20141117
  Receipt Date: 20141117
  Transmission Date: 20150529
  Serious: Yes (Other)
  Sender: FDA-Public Use
  Company Number: KAD201411-001475

PATIENT
  Sex: Male

DRUGS (3)
  1. SOLVALDI (SOFOSBUVIR) (SOFOSBUVIR) [Concomitant]
  2. RIBAVIRIN. [Suspect]
     Active Substance: RIBAVIRIN
     Indication: HEPATITIS C
     Dates: start: 201401, end: 201407
  3. INTERFERON ALFACON-1 [Suspect]
     Active Substance: INTERFERON ALFACON-1
     Indication: HEPATITIS C

REACTIONS (3)
  - Hepatic cirrhosis [None]
  - Drug intolerance [None]
  - Viral load increased [None]
